FAERS Safety Report 6890386-0 (Version None)
Quarter: 2010Q3

REPORT INFORMATION
  Report Type: 
  Country: None (occurrence: None)
  Receive Date: 20100730
  Receipt Date: 20081011
  Transmission Date: 20110219
  Serious: No
  Sender: FDA-Public Use
  Company Number: US-PFIZER INC-2008071070

PATIENT
  Sex: Female

DRUGS (3)
  1. LIPITOR [Suspect]
  2. ZOCOR [Suspect]
  3. STATINS [Concomitant]

REACTIONS (3)
  - MUSCULOSKELETAL PAIN [None]
  - PAIN [None]
  - PAIN IN EXTREMITY [None]
